FAERS Safety Report 21184544 (Version 1)
Quarter: 2022Q3

REPORT INFORMATION
  Report Type: Spontaneous
  Country: CN (occurrence: CN)
  Receive Date: 20220808
  Receipt Date: 20220808
  Transmission Date: 20221027
  Serious: Yes (Other)
  Sender: FDA-Public Use
  Company Number: CN-009507513-2208CHN002694

PATIENT
  Age: 83 Year
  Sex: Male

DRUGS (2)
  1. CILASTATIN SODIUM\IMIPENEM [Suspect]
     Active Substance: CILASTATIN SODIUM\IMIPENEM
     Indication: Antibiotic therapy
     Dosage: 1 GRAM, TID, FORMULATION:POWDER FOR INJECTION
     Route: 041
     Dates: start: 20220704, end: 20220710
  2. SODIUM CHLORIDE [Concomitant]
     Active Substance: SODIUM CHLORIDE
     Indication: Medication dilution
     Dosage: 100 MILLILITER, TID
     Route: 041
     Dates: start: 20220704, end: 20220710

REACTIONS (13)
  - Unresponsive to stimuli [Unknown]
  - Critical illness [Unknown]
  - Depressed level of consciousness [Unknown]
  - Hypoproteinaemia [Unknown]
  - Condition aggravated [Unknown]
  - Cough [Unknown]
  - Productive cough [Unknown]
  - Respiratory rate decreased [Unknown]
  - Oxygen saturation abnormal [Unknown]
  - Heart rate decreased [Unknown]
  - Fatigue [Unknown]
  - Dyspnoea [Unknown]
  - Diarrhoea [Unknown]

NARRATIVE: CASE EVENT DATE: 20220701
